FAERS Safety Report 16004841 (Version 2)
Quarter: 2019Q1

REPORT INFORMATION
  Report Type: Report from Study
  Country: DE (occurrence: DE)
  Receive Date: 20190226
  Receipt Date: 20190306
  Transmission Date: 20190418
  Serious: Yes (Hospitalization, Congenital Anomaly, Other)
  Sender: FDA-Public Use
  Company Number: DE-ACCORD-108677

PATIENT
  Age: 9 Month
  Sex: Male
  Weight: 2.8 kg

DRUGS (6)
  1. METOPROLOL. [Suspect]
     Active Substance: METOPROLOL
     Indication: PRODUCT USED FOR UNKNOWN INDICATION
     Dosage: PROBABLY UNTIL DELIVERY
     Route: 064
  2. ACETYLSALICYLIC ACID [Suspect]
     Active Substance: ASPIRIN
     Indication: PRODUCT USED FOR UNKNOWN INDICATION
     Dosage: 100 MG, UNK
     Route: 064
  3. RAMIPRIL. [Suspect]
     Active Substance: RAMIPRIL
     Indication: PRODUCT USED FOR UNKNOWN INDICATION
     Dosage: EXPOSURE DURATION: 0-8 WEEKS
     Route: 064
  4. PRAVASTATIN. [Suspect]
     Active Substance: PRAVASTATIN
     Indication: PRODUCT USED FOR UNKNOWN INDICATION
     Dosage: 0-8 WEEKS
     Route: 064
  5. DIHYDRALAZINE/DIHYDRALAZINE MESILATE/DIHYDRALAZINE SULFATE [Suspect]
     Active Substance: DIHYDRALAZINE
     Indication: PRODUCT USED FOR UNKNOWN INDICATION
     Route: 064
  6. CLOPIDOGREL [Suspect]
     Active Substance: CLOPIDOGREL BISULFATE
     Indication: PRODUCT USED FOR UNKNOWN INDICATION
     Dosage: 75 MG, UNK
     Route: 064

REACTIONS (14)
  - Ventricular septal defect [Unknown]
  - Coarctation of the aorta [Recovered/Resolved with Sequelae]
  - Mitral valve hypoplasia [Recovered/Resolved with Sequelae]
  - Patent ductus arteriosus [Unknown]
  - Shone complex [Unknown]
  - Supravalvular aortic stenosis [Unknown]
  - Heart disease congenital [Unknown]
  - Aorta hypoplasia [Recovered/Resolved with Sequelae]
  - Atrial septal defect [Recovered/Resolved with Sequelae]
  - Congenital heart valve disorder [Unknown]
  - Post procedural complication [None]
  - Foetal exposure during pregnancy [Unknown]
  - Seizure [Unknown]
  - Congenital aortic valve stenosis [Recovered/Resolved with Sequelae]

NARRATIVE: CASE EVENT DATE: 2005
